FAERS Safety Report 20906853 (Version 1)
Quarter: 2022Q2

REPORT INFORMATION
  Report Type: Spontaneous
  Country: US (occurrence: None)
  Receive Date: 20220602
  Receipt Date: 20220602
  Transmission Date: 20220721
  Serious: Yes (Hospitalization)
  Sender: FDA-Public Use
  Company Number: None

PATIENT
  Age: 59 Year
  Sex: Male
  Weight: 80.29 kg

DRUGS (2)
  1. PAROXETINE [Suspect]
     Active Substance: PAROXETINE
     Indication: Depression
     Dosage: FREQUENCY : DAILY;?
     Route: 048
     Dates: start: 20210820, end: 20210910
  2. PAROXETINE [Suspect]
     Active Substance: PAROXETINE
     Indication: Post-traumatic stress disorder

REACTIONS (10)
  - Mania [None]
  - Therapy interrupted [None]
  - Abnormal behaviour [None]
  - Agitation [None]
  - Treatment noncompliance [None]
  - Paranoia [None]
  - Affect lability [None]
  - Impulsive behaviour [None]
  - Anger [None]
  - Aggression [None]

NARRATIVE: CASE EVENT DATE: 20210913
